FAERS Safety Report 5281679-1 (Version None)
Quarter: 2007Q1

REPORT INFORMATION
  Report Type: 
  Country: None (occurrence: None)
  Receive Date: 20070326
  Receipt Date: 20070309
  Transmission Date: 20070707
  Serious: Yes (Death, Hospitalization)
  Sender: FDA-Public Use
  Company Number: 2007BI006331

PATIENT
  Age: 65 Year
  Sex: Female

DRUGS (5)
  1. AVONEX [Suspect]
     Indication: MULTIPLE SCLEROSIS
     Dosage: 30 UG;QW;IM
     Route: 030
     Dates: start: 20061213, end: 20070126
  2. TANATRIL [Concomitant]
  3. ROHYPNOL [Concomitant]
  4. LENDRMIN [Concomitant]
  5. FENAZOL [Concomitant]

REACTIONS (5)
  - BRAIN STEM HAEMORRHAGE [None]
  - DEPRESSED LEVEL OF CONSCIOUSNESS [None]
  - HAEMORRHAGIC CEREBRAL INFARCTION [None]
  - MYDRIASIS [None]
  - RESPIRATORY ARREST [None]
